FAERS Safety Report 20817926 (Version 1)
Quarter: 2022Q2

REPORT INFORMATION
  Report Type: Spontaneous
  Country: US (occurrence: None)
  Receive Date: 20220511
  Receipt Date: 20220511
  Transmission Date: 20220721
  Serious: No
  Sender: FDA-Public Use
  Company Number: None

PATIENT
  Age: 77 Year
  Sex: Female
  Weight: 52.16 kg

DRUGS (12)
  1. XALKORI [Suspect]
     Active Substance: CRIZOTINIB
     Indication: Lung neoplasm malignant
     Dosage: FREQUENCY : TWICE A DAY;?
     Route: 048
  2. ASPIRIN [Concomitant]
     Active Substance: ASPIRIN
  3. BELSOMRA [Concomitant]
     Active Substance: SUVOREXANT
  4. FAMOTIDINE [Concomitant]
     Active Substance: FAMOTIDINE
  5. GAVILAX [Concomitant]
     Active Substance: POLYETHYLENE GLYCOL 3350
  6. LINZESS [Concomitant]
     Active Substance: LINACLOTIDE
  7. MECLIZINE [Concomitant]
     Active Substance: MECLIZINE HYDROCHLORIDE
  8. OLMESARTAN [Concomitant]
     Active Substance: OLMESARTAN
  9. ROSUVASTATIN [Concomitant]
     Active Substance: ROSUVASTATIN
  10. VASCEPA [Concomitant]
     Active Substance: ICOSAPENT ETHYL
  11. VITAMIN D [Concomitant]
     Active Substance: VITAMIN D NOS
  12. ZOLPIDEM [Concomitant]
     Active Substance: ZOLPIDEM TARTRATE

REACTIONS (2)
  - Heart rate decreased [None]
  - Dizziness [None]
